FAERS Safety Report 24334459 (Version 1)
Quarter: 2024Q3

REPORT INFORMATION
  Report Type: Report from Study
  Country: GB (occurrence: GB)
  Receive Date: 20240918
  Receipt Date: 20240918
  Transmission Date: 20241017
  Serious: Yes (Other)
  Sender: NOVARTIS
  Company Number: GB-002147023-NVSC2024GB185360

PATIENT
  Age: 50 Year
  Sex: Female

DRUGS (1)
  1. MAYZENT [Suspect]
     Active Substance: SIPONIMOD
     Indication: Multiple sclerosis
     Dosage: UNK, QD
     Route: 048
     Dates: start: 20230918

REACTIONS (3)
  - Lower respiratory tract infection [Unknown]
  - Lymphoma [Unknown]
  - Seborrhoeic keratosis [Unknown]

NARRATIVE: CASE EVENT DATE: 20240816
